FAERS Safety Report 17911577 (Version 3)
Quarter: 2020Q3

REPORT INFORMATION
  Report Type: Spontaneous
  Country: CA (occurrence: CA)
  Receive Date: 20200618
  Receipt Date: 20200925
  Transmission Date: 20201103
  Serious: Yes (Other)
  Sender: FDA-Public Use
  Company Number: CA-CELGENEUS-CAN-20200407001

PATIENT
  Sex: Male

DRUGS (3)
  1. REVLIMID [Suspect]
     Active Substance: LENALIDOMIDE
     Indication: PLASMA CELL MYELOMA RECURRENT
     Dosage: 25 MILLIGRAM
     Route: 048
     Dates: start: 20200330, end: 20200526
  2. REVLIMID [Suspect]
     Active Substance: LENALIDOMIDE
     Dosage: 25 MILLIGRAM
     Route: 048
     Dates: start: 2020, end: 20200911
  3. REVLIMID [Suspect]
     Active Substance: LENALIDOMIDE
     Dosage: 25 MILLIGRAM
     Route: 048
     Dates: start: 2020, end: 20200722

REACTIONS (14)
  - Purpura [Recovering/Resolving]
  - Back pain [Not Recovered/Not Resolved]
  - Rash [Unknown]
  - Constipation [Unknown]
  - Diarrhoea [Unknown]
  - Spinal fracture [Unknown]
  - Dizziness [Recovering/Resolving]
  - Peripheral swelling [Unknown]
  - Parkinson^s disease [Unknown]
  - Flatulence [Unknown]
  - Bone pain [Recovering/Resolving]
  - Diabetes mellitus [Recovering/Resolving]
  - Gait disturbance [Unknown]
  - Productive cough [Recovering/Resolving]

NARRATIVE: CASE EVENT DATE: 2020
